FAERS Safety Report 26012338 (Version 1)
Quarter: 2025Q4

REPORT INFORMATION
  Report Type: Spontaneous
  Country: JP (occurrence: JP)
  Receive Date: 20251107
  Receipt Date: 20251107
  Transmission Date: 20260117
  Serious: Yes (Life-Threatening, Hospitalization, Disabling, Other)
  Sender: MERCK SHARP & DOHME LLC
  Company Number: JP-ONO-2022JP032602AA

PATIENT
  Age: 75 Year
  Sex: Female
  Weight: 50.9 kg

DRUGS (14)
  1. EMEND [Suspect]
     Active Substance: APREPITANT
     Dosage: DOSE DESCRIPTION : UNK
     Route: 048
     Dates: start: 20201208, end: 20201210
  2. EMEND [Suspect]
     Active Substance: APREPITANT
     Dosage: DOSE DESCRIPTION : UNK
     Route: 048
     Dates: start: 20210105, end: 20210107
  3. EMEND [Suspect]
     Active Substance: APREPITANT
     Dosage: DOSE DESCRIPTION : UNK
     Route: 048
     Dates: start: 20210202, end: 20210204
  4. EMEND [Suspect]
     Active Substance: APREPITANT
     Dosage: DOSE DESCRIPTION : UNK
     Route: 048
     Dates: start: 20210303, end: 20210305
  5. SULFAMETHOXAZOLE\TRIMETHOPRIM [Suspect]
     Active Substance: SULFAMETHOXAZOLE\TRIMETHOPRIM
     Dosage: DOSE DESCRIPTION : 1 DF, EVERYDAY?DAILY DOSE : 1 DOSAGE FORM
     Route: 048
     Dates: start: 20221115, end: 20221128
  6. ETIZOLAM [Concomitant]
     Active Substance: ETIZOLAM
     Dosage: DOSE DESCRIPTION : 0.5 MG
     Route: 065
     Dates: start: 20221115, end: 20221128
  7. REBAMIPIDE [Concomitant]
     Active Substance: REBAMIPIDE
     Dosage: DOSE DESCRIPTION : 100 MG, Q8H?DAILY DOSE : 300 MILLIGRAM
     Route: 048
     Dates: start: 20221115, end: 20221128
  8. YERVOY [Suspect]
     Active Substance: IPILIMUMAB
     Indication: Non-small cell lung cancer recurrent
     Dosage: 1 MG/KG
     Route: 042
     Dates: start: 20221115, end: 20221115
  9. YERVOY [Suspect]
     Active Substance: IPILIMUMAB
     Indication: Non-small cell lung cancer recurrent
     Dosage: 1 MG/KG
     Route: 042
     Dates: start: 20220215, end: 20220913
  10. AMLODIPINE [Concomitant]
     Active Substance: AMLODIPINE BESYLATE
     Dosage: DOSE DESCRIPTION : 5 MG, EVERYDAY?DAILY DOSE : 5 MILLIGRAM
     Route: 048
     Dates: start: 20201207, end: 20221128
  11. OPDIVO [Suspect]
     Active Substance: NIVOLUMAB
     Dosage: 360 MG, Q3W
     Route: 042
     Dates: start: 20221025, end: 20221115
  12. OPDIVO [Suspect]
     Active Substance: NIVOLUMAB
     Dosage: 360 MG, Q3W
     Route: 042
     Dates: start: 20220215, end: 20220913
  13. VONOPRAZAN FUMARATE [Concomitant]
     Active Substance: VONOPRAZAN FUMARATE
     Dosage: DOSE DESCRIPTION : 20 MG, EVERYDAY?DAILY DOSE : 20 MILLIGRAM
     Route: 048
     Dates: start: 20221115, end: 20221128
  14. ALFACALCIDOL [Concomitant]
     Active Substance: ALFACALCIDOL
     Dosage: DOSE DESCRIPTION : 0.5 ?G, EVERYDAY?DAILY DOSE : 1 DOSAGE FORM?REGIMEN DOSE : 14  DOSAGE FORM
     Route: 048
     Dates: start: 20221115, end: 20221128

REACTIONS (14)
  - Cytokine release syndrome [Recovered/Resolved]
  - Disseminated intravascular coagulation [Recovered/Resolved]
  - Altered state of consciousness [Recovered/Resolved]
  - Hypoglycaemia [Recovered/Resolved]
  - Hyponatraemia [Recovered/Resolved]
  - Stevens-Johnson syndrome [Recovered/Resolved]
  - Toxic epidermal necrolysis [Recovered/Resolved]
  - Liver disorder [Recovered/Resolved]
  - Fulminant type 1 diabetes mellitus [Recovered/Resolved]
  - Immune-mediated hypothyroidism [Recovered/Resolved]
  - Gait disturbance [Recovering/Resolving]
  - Hepatic enzyme increased [Recovered/Resolved]
  - Skin disorder [Recovered/Resolved]
  - Hepatic function abnormal [Recovered/Resolved]

NARRATIVE: CASE EVENT DATE: 20220621
